FAERS Safety Report 8101414-9 (Version None)
Quarter: 2012Q1

REPORT INFORMATION
  Report Type: 
  Country: None (occurrence: None)
  Receive Date: 20120129
  Receipt Date: 20110907
  Transmission Date: 20120608
  Serious: No
  Sender: FDA-Public Use
  Company Number: US-ABBOTT-11P-163-0852480-00

PATIENT
  Age: 59 Year
  Sex: Male

DRUGS (8)
  1. SIMVASTATIN [Concomitant]
     Indication: BLOOD CHOLESTEROL INCREASED
     Dosage: 10 MG DAILY
  2. METFORMIN HCL [Concomitant]
     Indication: DIABETES MELLITUS
  3. BUPROPION HCL [Concomitant]
     Indication: DEPRESSION
     Dosage: 300 MG DAILY
  4. HUMIRA [Suspect]
     Indication: PSORIASIS
     Dates: start: 20110703
  5. FOLIC ACID [Concomitant]
     Indication: PRODUCT USED FOR UNKNOWN INDICATION
     Dosage: DAILY
  6. SUPPLEMENTS [Concomitant]
     Indication: PRODUCT USED FOR UNKNOWN INDICATION
     Dosage: DAILY
  7. PROZAC [Concomitant]
     Indication: DEPRESSION
     Dosage: 40 MG DAILY
  8. LISINOPRIL [Concomitant]
     Indication: HYPERTENSION
     Dosage: DAILY

REACTIONS (1)
  - INCORRECT PRODUCT STORAGE [None]
